APPROVED DRUG PRODUCT: ROPINIROLE HYDROCHLORIDE
Active Ingredient: ROPINIROLE HYDROCHLORIDE
Strength: EQ 0.5MG BASE
Dosage Form/Route: TABLET;ORAL
Application: A079050 | Product #002 | TE Code: AB
Applicant: CHARTWELL RX SCIENCES LLC
Approved: May 29, 2008 | RLD: No | RS: No | Type: RX